FAERS Safety Report 7224932-4 (Version None)
Quarter: 2011Q1

REPORT INFORMATION
  Report Type: 
  Country: None (occurrence: None)
  Receive Date: 20110113
  Receipt Date: 20100813
  Transmission Date: 20110831
  Serious: Yes (Death, Life-Threatening, Hospitalization)
  Sender: FDA-Public Use
  Company Number: IN-SANOFI-AVENTIS-200910839GDDC

PATIENT
  Age: 49 Year
  Sex: Male
  Weight: 55 kg

DRUGS (38)
  1. AUGMENTIN '125' [Concomitant]
  2. ONDANSETRON [Concomitant]
     Route: 051
     Dates: start: 20081022, end: 20081022
  3. BUDECORT ^ASTRA^ [Concomitant]
     Dates: start: 20090121, end: 20090122
  4. CLAVULANIC ACID/TICARCILLIN DISODIUM [Concomitant]
     Dates: start: 20090124, end: 20090203
  5. CLARITHROMYCIN [Concomitant]
     Dates: start: 20090125, end: 20090203
  6. DECADRON [Concomitant]
     Dates: start: 20090124
  7. PLACEBO [Suspect]
     Dosage: DOSE UNIT: 6 MG/KG
     Route: 042
     Dates: start: 20090114, end: 20090114
  8. HISTAC [Concomitant]
     Dates: start: 20081022
  9. MULTI-VITAMINS [Concomitant]
     Dates: start: 20080701
  10. EPTOIN [Concomitant]
     Dates: start: 20081112
  11. LEVOFLOXACIN [Concomitant]
  12. CLEXANE /NET/ [Concomitant]
     Dates: start: 20090126, end: 20090217
  13. HYDROCORTISONE [Concomitant]
     Dates: start: 20090123
  14. ALL OTHER THERAPEUTIC PRODUCTS [Concomitant]
     Dates: start: 20090206
  15. CIFRAN [Concomitant]
     Dates: start: 20090210, end: 20090216
  16. DOCETAXEL [Suspect]
     Dosage: DOSE UNIT: 75 MG/M**2
     Route: 042
     Dates: start: 20090114, end: 20090114
  17. BECLOMETHASONE DIPROPIONATE [Concomitant]
     Route: 055
     Dates: start: 20081022
  18. DECADRON [Concomitant]
     Dates: start: 20081023, end: 20081023
  19. TAXIM [Concomitant]
     Dates: start: 20090122, end: 20090124
  20. ALL OTHER THERAPEUTIC PRODUCTS [Concomitant]
     Dates: start: 20090122, end: 20090221
  21. AMIKACIN [Concomitant]
     Dates: start: 20090123, end: 20090202
  22. SERENACE [Concomitant]
     Dates: start: 20090216, end: 20090216
  23. COLGEN [Concomitant]
     Dates: start: 20080701
  24. COLGEN [Concomitant]
     Dates: start: 20080718
  25. CORTICOSTEROIDS [Concomitant]
  26. RANTAC [Concomitant]
     Dates: start: 20090122
  27. DUPHALAC /NET/ [Concomitant]
     Dates: start: 20090125, end: 20090220
  28. ALPHA D3 [Concomitant]
     Dates: start: 20090126, end: 20090220
  29. LASIX [Concomitant]
     Dates: start: 20090123
  30. MULTI-VITAMINS [Concomitant]
     Dates: start: 20080718
  31. IPRATROPIUM BROMIDE/SALBUTAMOL SULFATE [Concomitant]
     Route: 055
     Dates: start: 20090127, end: 20090220
  32. DECADRON [Concomitant]
     Dates: start: 20090121, end: 20090127
  33. RANTAC [Concomitant]
     Dates: start: 20081022, end: 20081022
  34. PHENIRAMINE [Concomitant]
     Dates: start: 20090211
  35. ONDANSETRON [Concomitant]
     Dates: start: 20081023, end: 20081025
  36. DECADRON [Concomitant]
     Route: 051
     Dates: start: 20081022, end: 20081022
  37. MANNITOL [Concomitant]
     Dates: start: 20090121, end: 20090127
  38. CEFUROXIME [Concomitant]
     Dates: start: 20090216, end: 20090221

REACTIONS (5)
  - DECREASED APPETITE [None]
  - ANAEMIA [None]
  - HYPOKALAEMIA [None]
  - RESPIRATORY TRACT INFECTION [None]
  - NAUSEA [None]
